FAERS Safety Report 8764001 (Version 1)
Quarter: 2012Q4

REPORT INFORMATION
  Report Type: 
  Country: US (occurrence: US)
  Receive Date: 20120831
  Receipt Date: 20120831
  Transmission Date: 20130627
  Serious: No
  Sender: FDA-Public Use
  Company Number: US-BAUSCH-2012BL002626

PATIENT
  Age: 69 Year
  Sex: Female

DRUGS (4)
  1. CROMOLYN SODIUM [Suspect]
     Indication: LACRIMATION INCREASED
     Dosage: daily dose: 2 SPRAY
     Route: 045
     Dates: start: 201204, end: 201204
  2. CROMOLYN SODIUM [Suspect]
     Indication: NASAL CONGESTION
  3. CROMOLYN SODIUM [Suspect]
     Indication: DRY THROAT
  4. CLARITIN-D [Concomitant]
     Indication: PRODUCT USED FOR UNKNOWN INDICATION
     Route: 048
     Dates: start: 2002

REACTIONS (2)
  - Swelling face [Recovered/Resolved]
  - Facial pain [Recovered/Resolved]
